FAERS Safety Report 4559551-1 (Version None)
Quarter: 2005Q1

REPORT INFORMATION
  Report Type: 
  Country: None (occurrence: None)
  Receive Date: 20050124
  Receipt Date: 20050120
  Transmission Date: 20050727
  Serious: Yes (Hospitalization)
  Sender: FDA-Public Use
  Company Number: FR-GLAXOSMITHKLINE-B0365145B

PATIENT

DRUGS (1)
  1. CLAMOXYL [Suspect]
     Indication: PREMATURE RUPTURE OF MEMBRANES
     Dosage: 1G SINGLE DOSE
     Dates: start: 20050110, end: 20050110

REACTIONS (6)
  - BLOOD PH DECREASED [None]
  - CAESAREAN SECTION [None]
  - DRUG EXPOSURE DURING PREGNANCY [None]
  - FOETAL DISTRESS SYNDROME [None]
  - HYPOTONIA [None]
  - NEONATAL DISORDER [None]
